FAERS Safety Report 19816456 (Version 1)
Quarter: 2021Q3

REPORT INFORMATION
  Report Type: Spontaneous
  Country: US (occurrence: US)
  Receive Date: 20210909
  Receipt Date: 20210909
  Transmission Date: 20211014
  Serious: No
  Sender: FDA-Public Use
  Company Number: US-AMGEN INC.-USASP2021137915

PATIENT
  Age: 66 Year
  Sex: Female

DRUGS (5)
  1. EMGALITY [Concomitant]
     Active Substance: GALCANEZUMAB-GNLM
  2. ZONEGRAN [Concomitant]
     Active Substance: ZONISAMIDE
  3. VITAMINS [ASCORBIC ACID;ERGOCALCIFEROL;NICOTINAMIDE;RETINOL;RIBOFLAVIN [Concomitant]
     Active Substance: ASCORBIC ACID\ERGOCALCIFEROL\NIACINAMIDE\RETINOL\RIBOFLAVIN\THIAMINE
  4. TOPROL XL [Concomitant]
     Active Substance: METOPROLOL SUCCINATE
  5. AIMOVIG [Suspect]
     Active Substance: ERENUMAB-AOOE
     Indication: MIGRAINE
     Dosage: 70 MILLIGRAM, QMO, NO DOSE ADMINISTERED
     Route: 058
     Dates: start: 20210901, end: 20210901

REACTIONS (2)
  - Device difficult to use [Unknown]
  - Wrong technique in product usage process [Unknown]

NARRATIVE: CASE EVENT DATE: 20210901
